FAERS Safety Report 9980909 (Version 3)
Quarter: 2014Q1

REPORT INFORMATION
  Report Type: Spontaneous
  Country: FR (occurrence: FR)
  Receive Date: 20140307
  Receipt Date: 20140319
  Transmission Date: 20141002
  Serious: Yes (Hospitalization, Other)
  Sender: FDA-Public Use
  Company Number: FR-JNJFOC-20140206896

PATIENT
  Age: 65 Year
  Sex: Male

DRUGS (9)
  1. ZYTIGA [Suspect]
     Indication: PRODUCT USED FOR UNKNOWN INDICATION
     Route: 048
     Dates: start: 20130204, end: 20131217
  2. ZYTIGA [Suspect]
     Indication: PRODUCT USED FOR UNKNOWN INDICATION
     Route: 048
     Dates: start: 20140107, end: 20140116
  3. SOLUPRED [Concomitant]
     Indication: PRODUCT USED FOR UNKNOWN INDICATION
     Route: 048
     Dates: start: 20140116
  4. SOLUPRED [Concomitant]
     Indication: PRODUCT USED FOR UNKNOWN INDICATION
     Dosage: 1-0-1
     Route: 048
     Dates: start: 20130204, end: 20131217
  5. SOLUPRED [Concomitant]
     Indication: PRODUCT USED FOR UNKNOWN INDICATION
     Dosage: 1-0-1
     Route: 048
     Dates: start: 20140107
  6. ATENOLOL [Concomitant]
     Indication: PRODUCT USED FOR UNKNOWN INDICATION
     Dosage: 1/2 ? 0 ? 0
     Route: 048
  7. GLUCOPHAGE [Concomitant]
     Indication: PRODUCT USED FOR UNKNOWN INDICATION
     Dosage: 1-0-1
     Route: 048
  8. VOLTARENE [Concomitant]
     Indication: PRODUCT USED FOR UNKNOWN INDICATION
     Dosage: DURING 8 DAYS
     Route: 065
     Dates: start: 20131111
  9. VOLTARENE [Concomitant]
     Indication: PRODUCT USED FOR UNKNOWN INDICATION
     Dosage: DURING 8 DAYS
     Route: 065
     Dates: start: 20130910

REACTIONS (7)
  - Asthenia [Unknown]
  - Hypertrophic osteoarthropathy [Unknown]
  - Renal failure acute [Recovered/Resolved]
  - Inflammation [Recovered/Resolved]
  - Inflammatory marker increased [Recovered/Resolved]
  - Confusional state [Unknown]
  - Myalgia [Recovered/Resolved]
